FAERS Safety Report 10211200 (Version 6)
Quarter: 2014Q3

REPORT INFORMATION
  Report Type: Spontaneous
  Country: IT (occurrence: None)
  Receive Date: 20140528
  Receipt Date: 20140813
  Transmission Date: 20150326
  Serious: Yes (Hospitalization, Other)
  Sender: FDA-Public Use
  Company Number: AUR-APL-2014-06082

PATIENT
  Age: 68 Year
  Sex: Male

DRUGS (12)
  1. HUMALOG [Suspect]
     Active Substance: INSULIN LISPRO
     Indication: PRODUCT USED FOR UNKNOWN INDICATION
     Dosage: (29 DOSAGE FORMS,1 D)
     Route: 058
     Dates: start: 20130117, end: 20131105
  2. RYTMONORM [Concomitant]
     Active Substance: PROPAFENONE
  3. LANTUS [Suspect]
     Active Substance: INSULIN GLARGINE
     Indication: DIABETES MELLITUS
     Dosage: (46 DOSAGE FORMS,1 D)
     Route: 058
     Dates: start: 20130117, end: 20131105
  4. PRITOR [Concomitant]
     Active Substance: TELMISARTAN
  5. MINITRAN [Concomitant]
     Active Substance: NITROGLYCERIN
  6. NORVASC [Concomitant]
     Active Substance: AMLODIPINE BESYLATE
  7. METFORMIN [Suspect]
     Active Substance: METFORMIN HYDROCHLORIDE
     Indication: DIABETES MELLITUS
     Dosage: 71.4286 MG (500 MG,1 IN 1 WK)
     Route: 048
     Dates: start: 20130117, end: 20131105
  8. CARDICOR [Concomitant]
     Active Substance: BISOPROLOL
  9. TRIATEC [Concomitant]
     Active Substance: RAMIPRIL
  10. ESKIM [Concomitant]
     Active Substance: OMEGA-3 FATTY ACIDS
  11. CARDIOASPIRIN (ACETYLSALICYLIC ACID) [Concomitant]
     Active Substance: ASPIRIN
  12. SIVASTIN [Concomitant]
     Active Substance: SIMVASTATIN

REACTIONS (6)
  - Glycosylated haemoglobin increased [None]
  - Blood creatinine increased [None]
  - Hypoglycaemia [None]
  - Hypophagia [None]
  - Disease recurrence [None]
  - Medication error [None]

NARRATIVE: CASE EVENT DATE: 20130117
